FAERS Safety Report 9901379 (Version 1)
Quarter: 2014Q1

REPORT INFORMATION
  Report Type: Spontaneous
  Country: US (occurrence: US)
  Receive Date: 20140217
  Receipt Date: 20140217
  Transmission Date: 20141002
  Serious: Yes (Other)
  Sender: FDA-Public Use
  Company Number: US-PFIZER INC-2014040699

PATIENT
  Sex: Female

DRUGS (1)
  1. INLYTA [Suspect]
     Dosage: 5 MG, 2X/DAY
     Route: 048
     Dates: start: 201402, end: 201402

REACTIONS (4)
  - Aphagia [Unknown]
  - Diarrhoea [Unknown]
  - Vomiting [Unknown]
  - Asthenia [Unknown]
